FAERS Safety Report 10074421 (Version 1)
Quarter: 2014Q2

REPORT INFORMATION
  Report Type: Spontaneous
  Country: US (occurrence: US)
  Receive Date: 20140412
  Receipt Date: 20140412
  Transmission Date: 20141212
  Serious: No
  Sender: FDA-Public Use
  Company Number: US-009507513-1404USA006409

PATIENT
  Sex: 0

DRUGS (4)
  1. JANUVIA [Suspect]
     Dosage: UNK, QD (ONE TIME A DAY)
  2. METFORMIN [Concomitant]
     Dosage: 1000 MG, BID
  3. GLIPIZIDE [Concomitant]
     Dosage: 10 MG, QD
  4. ACTOS [Concomitant]
     Dosage: 15 MG, QD

REACTIONS (1)
  - Renal disorder [Unknown]
